FAERS Safety Report 10555739 (Version 1)
Quarter: 2014Q4

REPORT INFORMATION
  Report Type: Spontaneous
  Country: KR (occurrence: KR)
  Receive Date: 20141030
  Receipt Date: 20141030
  Transmission Date: 20150529
  Serious: Yes (Other)
  Sender: FDA-Public Use
  Company Number: PHHY2014KR139962

PATIENT
  Age: 66 Year
  Sex: Female

DRUGS (3)
  1. CICLOSPORIN [Interacting]
     Active Substance: CYCLOSPORINE
     Indication: OFF LABEL USE
  2. CICLOSPORIN [Suspect]
     Active Substance: CYCLOSPORINE
     Indication: LICHEN PLANUS
     Route: 065
  3. METHOTREXATE [Interacting]
     Active Substance: METHOTREXATE
     Indication: RHEUMATOID ARTHRITIS
     Route: 065

REACTIONS (6)
  - Drug interaction [Unknown]
  - Pancytopenia [Unknown]
  - Condition aggravated [Unknown]
  - Oral mucosa erosion [Recovered/Resolved]
  - Herpes simplex [Unknown]
  - Genital erosion [Unknown]
